FAERS Safety Report 15125559 (Version 5)
Quarter: 2019Q1

REPORT INFORMATION
  Report Type: Spontaneous
  Country: CA (occurrence: CA)
  Receive Date: 20180710
  Receipt Date: 20190129
  Transmission Date: 20190417
  Serious: Yes (Hospitalization, Other)
  Sender: FDA-Public Use
  Company Number: CA-CELLTRION INC.-2018CA021263

PATIENT

DRUGS (10)
  1. ENBREL [Concomitant]
     Active Substance: ETANERCEPT
     Dosage: 50 MG WEEKLY FOR 4 MONTHS
     Route: 058
     Dates: start: 20180515
  2. PANTOPRAZOLE [Concomitant]
     Active Substance: PANTOPRAZOLE
     Dosage: UNK
  3. INFLECTRA [Suspect]
     Active Substance: INFLIXIMAB-DYYB
     Indication: PSORIATIC ARTHROPATHY
     Dosage: 500 MG (0,2,6 WEEKS THEN EVERY 8 WEEKS)
     Route: 042
     Dates: start: 20180607
  4. SULFASALAZINE. [Concomitant]
     Active Substance: SULFASALAZINE
     Dosage: 1 G, 2X/DAY, FOR 6 WEEKS
     Route: 058
  5. LEVODOPA [Concomitant]
     Active Substance: LEVODOPA
     Dosage: 25 MG
  6. NAPROXEN. [Concomitant]
     Active Substance: NAPROXEN
     Dosage: 3X/DAY, AS NEEDED
  7. ACETAMINOPHEN. [Concomitant]
     Active Substance: ACETAMINOPHEN
     Indication: PREMEDICATION
     Dosage: 1000 MG
     Dates: start: 20181205
  8. ASA [Concomitant]
     Active Substance: ASPIRIN
     Dosage: 81 UNK
  9. CYMBALTA [Concomitant]
     Active Substance: DULOXETINE HYDROCHLORIDE
     Dosage: UNK
  10. INFLECTRA [Suspect]
     Active Substance: INFLIXIMAB-DYYB
     Dosage: 500 MG (0,2,6 WEEKS THEN EVERY 8 WEEKS)
     Route: 042
     Dates: start: 20181205

REACTIONS (9)
  - Road traffic accident [Unknown]
  - Inappropriate schedule of product administration [Unknown]
  - Product use issue [Unknown]
  - Concussion [Unknown]
  - Drug ineffective [Unknown]
  - Thermal burn [Unknown]
  - Headache [Not Recovered/Not Resolved]
  - Nightmare [Not Recovered/Not Resolved]
  - Blood pressure fluctuation [Unknown]

NARRATIVE: CASE EVENT DATE: 201806
